FAERS Safety Report 6587624-0 (Version None)
Quarter: 2010Q1

REPORT INFORMATION
  Report Type: 
  Country: None (occurrence: None)
  Receive Date: 20100218
  Receipt Date: 20100208
  Transmission Date: 20100710
  Serious: Yes (Hospitalization)
  Sender: FDA-Public Use
  Company Number: US-WYE-H13423510

PATIENT
  Age: 41 Year
  Sex: Male

DRUGS (17)
  1. EFFEXOR XR [Suspect]
  2. EFFEXOR XR [Suspect]
  3. MELOXICAM [Concomitant]
  4. OXYCODONE HCL [Concomitant]
  5. SERTRALINE HCL [Suspect]
  6. AMLODIPINE [Concomitant]
  7. CYCLOBENZAPRINE [Concomitant]
     Dosage: 10 MG TID PRN
  8. ALPRAZOLAM [Concomitant]
     Dosage: 1 MG TID PRN
  9. OXYCODONE HCL AND ACETAMINOPHEN [Concomitant]
     Dosage: 5/325 MG EVERY FOUR HOURS PRN
  10. LEVOFLOXACIN [Concomitant]
     Dosage: UNKNOWN
  11. LINEZOLID [Suspect]
     Dosage: UNKNOWN
  12. PIPERACILLIN SODIUM/TAZOBACTAM SODIUM [Concomitant]
     Dosage: UNKNOWN
  13. MORPHINE [Concomitant]
     Dosage: UNKNOWN
  14. VANCOMYCIN [Concomitant]
     Dosage: UNKNOWN
  15. FENTANYL-100 [Concomitant]
     Dosage: UNKNOWN
  16. MIDAZOLAM HCL [Concomitant]
     Dosage: UNKNOWN
  17. FAMOTIDINE [Concomitant]

REACTIONS (8)
  - CHEST PAIN [None]
  - COUGH [None]
  - DYSPNOEA [None]
  - METABOLIC ACIDOSIS [None]
  - PYREXIA [None]
  - RENAL FAILURE ACUTE [None]
  - RESPIRATORY FAILURE [None]
  - SEROTONIN SYNDROME [None]
